FAERS Safety Report 17441563 (Version 1)
Quarter: 2020Q1

REPORT INFORMATION
  Report Type: Report from Study
  Country: CA (occurrence: CA)
  Receive Date: 20200220
  Receipt Date: 20200220
  Transmission Date: 20200409
  Serious: Yes (Hospitalization)
  Sender: FDA-Public Use
  Company Number: CA-JNJFOC-20200213569

PATIENT
  Age: 28 Year
  Sex: Male
  Weight: 63 kg

DRUGS (1)
  1. REMICADE [Suspect]
     Active Substance: INFLIXIMAB
     Indication: COLITIS ULCERATIVE
     Route: 042
     Dates: start: 20180324, end: 20191026

REACTIONS (4)
  - Product use issue [Unknown]
  - Drug ineffective [Unknown]
  - Off label use [Unknown]
  - Colectomy [Recovering/Resolving]

NARRATIVE: CASE EVENT DATE: 20180324
